APPROVED DRUG PRODUCT: METOPROLOL TARTRATE
Active Ingredient: METOPROLOL TARTRATE
Strength: 1MG/ML
Dosage Form/Route: INJECTABLE;INJECTION
Application: A075160 | Product #001
Applicant: HOSPIRA INC
Approved: Jul 6, 1998 | RLD: No | RS: No | Type: DISCN